FAERS Safety Report 7946263-7 (Version None)
Quarter: 2011Q4

REPORT INFORMATION
  Report Type: 
  Country: None (occurrence: None)
  Receive Date: 20111129
  Receipt Date: 20111118
  Transmission Date: 20120403
  Serious: Yes (Hospitalization)
  Sender: FDA-Public Use
  Company Number: US-JNJFOC-20111108812

PATIENT
  Sex: Male
  Weight: 47.3 kg

DRUGS (2)
  1. REMICADE [Suspect]
     Indication: CROHN'S DISEASE
     Route: 042
     Dates: start: 20110412
  2. REMICADE [Suspect]
     Route: 042
     Dates: start: 20100831

REACTIONS (2)
  - CROHN'S DISEASE [None]
  - ABDOMINAL ABSCESS [None]
